FAERS Safety Report 20469845 (Version 1)
Quarter: 2022Q1

REPORT INFORMATION
  Report Type: Spontaneous
  Country: None (occurrence: CN)
  Receive Date: 20220214
  Receipt Date: 20220214
  Transmission Date: 20220423
  Serious: Yes (Other)
  Sender: FDA-Public Use
  Company Number: CN-Breckenridge Pharmaceutical, Inc.-2125866

PATIENT
  Age: 48 Year
  Sex: Female

DRUGS (2)
  1. ZOLEDRONIC ACID [Suspect]
     Active Substance: ZOLEDRONIC ACID
     Indication: Breast cancer
     Route: 042
  2. APATINIB [Concomitant]
     Active Substance: APATINIB

REACTIONS (2)
  - Haemorrhage [Unknown]
  - Osteonecrosis [Unknown]
